FAERS Safety Report 18926818 (Version 3)
Quarter: 2021Q4

REPORT INFORMATION
  Report Type: Spontaneous
  Country: US (occurrence: US)
  Receive Date: 20210223
  Receipt Date: 20211109
  Transmission Date: 20220304
  Serious: No
  Sender: FDA-Public Use
  Company Number: US-SA-SAC20210219001548

PATIENT
  Age: 59 Year
  Sex: Female

DRUGS (2)
  1. DUPIXENT [Suspect]
     Active Substance: DUPILUMAB
     Indication: Dermatitis atopic
     Dosage: 300 MG, QOW
     Route: 058
     Dates: start: 20210128
  2. DIGESTIVE ADVANTAGE [BACILLUS COAGULANS] [Concomitant]
     Dosage: UNK

REACTIONS (6)
  - Nasopharyngitis [Unknown]
  - Injection site erythema [Unknown]
  - Dermatitis atopic [Unknown]
  - Pruritus [Not Recovered/Not Resolved]
  - Erythema [Unknown]
  - Dry skin [Not Recovered/Not Resolved]

NARRATIVE: CASE EVENT DATE: 20210101
